FAERS Safety Report 6569842-0 (Version None)
Quarter: 2010Q1

REPORT INFORMATION
  Report Type: 
  Country: None (occurrence: None)
  Receive Date: 20100204
  Receipt Date: 20100126
  Transmission Date: 20100710
  Serious: Yes (Other)
  Sender: FDA-Public Use
  Company Number: US-SANOFI-AVENTIS-2009SA009795

PATIENT
  Age: 77 Year
  Sex: Male
  Weight: 80.9 kg

DRUGS (7)
  1. MULTAQ [Suspect]
     Indication: ATRIAL FIBRILLATION
     Route: 048
     Dates: start: 20091209, end: 20091209
  2. SIMVASTATIN [Concomitant]
     Indication: HYPERLIPIDAEMIA
     Route: 048
  3. ATENOLOL [Concomitant]
     Indication: HYPERTENSION
     Route: 048
  4. AMLODIPINE [Concomitant]
     Indication: HYPERTENSION
     Route: 048
  5. CALCIUM [Concomitant]
     Indication: OSTEOPOROSIS
  6. GLUCOSAMINE [Concomitant]
     Indication: ARTHRITIS
  7. CLONIDINE [Concomitant]
     Indication: HYPERTENSION

REACTIONS (1)
  - SYNCOPE [None]
